FAERS Safety Report 23746575 (Version 1)
Quarter: 2024Q2

REPORT INFORMATION
  Report Type: Report from Study
  Country: DE (occurrence: None)
  Receive Date: 20240416
  Receipt Date: 20240416
  Transmission Date: 20240715
  Serious: Yes (Death)
  Sender: FDA-Public Use
  Company Number: 2019SF43478

PATIENT
  Age: 26 Year
  Sex: Male
  Weight: 85 kg

DRUGS (16)
  1. QUETIAPINE [Suspect]
     Active Substance: QUETIAPINE
     Indication: Product used for unknown indication
     Dosage: 50.0MG UNKNOWN
     Route: 048
     Dates: start: 20180824
  2. QUETIAPINE [Suspect]
     Active Substance: QUETIAPINE
     Indication: Schizoaffective disorder
     Dosage: 50.0MG UNKNOWN
     Route: 048
     Dates: start: 20180824
  3. GLECAPREVIR\PIBRENTASVIR [Suspect]
     Active Substance: GLECAPREVIR\PIBRENTASVIR
     Indication: Chronic hepatitis C
     Route: 048
     Dates: start: 20190725
  4. MORPHINE SULFATE [Suspect]
     Active Substance: MORPHINE SULFATE
     Indication: Drug dependence
     Dosage: 50.0MG UNKNOWN
     Route: 048
     Dates: start: 20180824
  5. MORPHINE SULFATE [Suspect]
     Active Substance: MORPHINE SULFATE
     Indication: Product used for unknown indication
     Dosage: 50.0MG UNKNOWN
     Route: 048
     Dates: start: 20180824
  6. MORPHINE SULFATE [Suspect]
     Active Substance: MORPHINE SULFATE
     Indication: Schizoaffective disorder
     Dosage: 50.0MG UNKNOWN
     Route: 048
     Dates: start: 20180824
  7. MORPHINE SULFATE [Suspect]
     Active Substance: MORPHINE SULFATE
     Indication: Drug dependence
     Dosage: UNKNOWN
     Route: 048
     Dates: start: 20180831
  8. MORPHINE SULFATE [Suspect]
     Active Substance: MORPHINE SULFATE
     Indication: Product used for unknown indication
     Dosage: UNKNOWN
     Route: 048
     Dates: start: 20180831
  9. MORPHINE SULFATE [Suspect]
     Active Substance: MORPHINE SULFATE
     Indication: Schizoaffective disorder
     Dosage: UNKNOWN
     Route: 048
     Dates: start: 20180831
  10. CLARITHROMYCIN [Concomitant]
     Active Substance: CLARITHROMYCIN
     Indication: Product used for unknown indication
     Dates: start: 20190917, end: 20190917
  11. CLARITHROMYCIN [Concomitant]
     Active Substance: CLARITHROMYCIN
     Indication: Product used for unknown indication
     Dates: start: 20190917, end: 20190917
  12. CLINDAMYCIN [Concomitant]
     Active Substance: CLINDAMYCIN
     Indication: Abscess limb
     Dates: start: 20190918, end: 20190920
  13. CLINDAMYCIN [Concomitant]
     Active Substance: CLINDAMYCIN
     Indication: Product used for unknown indication
     Dates: start: 20190918, end: 20190920
  14. PANTOPRAZOLE SODIUM [Concomitant]
     Active Substance: PANTOPRAZOLE SODIUM
     Indication: Prophylaxis
     Dates: start: 20190917, end: 20190920
  15. PANTOPRAZOLE SODIUM [Concomitant]
     Active Substance: PANTOPRAZOLE SODIUM
     Indication: Product used for unknown indication
     Dates: start: 20190917, end: 20190920
  16. IVY EXTRACT [Concomitant]
     Active Substance: IVY EXTRACT
     Indication: Product used for unknown indication
     Dosage: COUGH LIQUID
     Dates: start: 20190919, end: 20190924

REACTIONS (4)
  - Fall [Fatal]
  - Poisoning [Fatal]
  - Urine alcohol test positive [Fatal]
  - Drug screen positive [Fatal]

NARRATIVE: CASE EVENT DATE: 20200221
